FAERS Safety Report 26025962 (Version 1)
Quarter: 2025Q4

REPORT INFORMATION
  Report Type: Spontaneous
  Country: LK (occurrence: LK)
  Receive Date: 20251111
  Receipt Date: 20251111
  Transmission Date: 20260117
  Serious: Yes (Death, Hospitalization, Other)
  Sender: BAYER HEALTHCARE PHARMACEUTICALS INC.
  Company Number: LK-BAYER-2025A147502

PATIENT
  Age: 55 Year
  Sex: Male

DRUGS (1)
  1. ULTRAVIST [Suspect]
     Active Substance: IOPROMIDE
     Indication: Angiogram
     Dosage: UNK, ONCE
     Dates: start: 20251105, end: 20251105

REACTIONS (2)
  - Rash morbilliform [Fatal]
  - Pruritus [Fatal]

NARRATIVE: CASE EVENT DATE: 20251105
